FAERS Safety Report 23069029 (Version 1)
Quarter: 2023Q4

REPORT INFORMATION
  Report Type: Spontaneous
  Country: FR (occurrence: FR)
  Receive Date: 20231016
  Receipt Date: 20231016
  Transmission Date: 20240110
  Serious: Yes (Other)
  Sender: FDA-Public Use
  Company Number: FR-STADA-287437

PATIENT

DRUGS (13)
  1. RUXOLITINIB [Suspect]
     Active Substance: RUXOLITINIB
     Indication: Chronic leukaemia
     Dosage: UNK
     Route: 065
  2. DASATINIB [Suspect]
     Active Substance: DASATINIB
     Indication: Chronic leukaemia
     Dosage: UNK
     Route: 065
  3. CYTARABINE [Concomitant]
     Active Substance: CYTARABINE
     Indication: Chronic leukaemia
     Dosage: UNK
     Route: 065
  4. BORTEZOMIB [Concomitant]
     Active Substance: BORTEZOMIB
     Indication: Chronic leukaemia
     Dosage: UNK
     Route: 065
  5. BUSULFAN [Concomitant]
     Active Substance: BUSULFAN
     Indication: Chronic leukaemia
     Dosage: UNK
     Route: 065
  6. AZACITIDINE [Concomitant]
     Active Substance: AZACITIDINE
     Indication: Chronic leukaemia
     Dosage: UNK
     Route: 065
  7. DEXAMETHASONE [Concomitant]
     Active Substance: DEXAMETHASONE
     Indication: Chronic leukaemia
     Dosage: UNK
     Route: 065
  8. FLUDARABINE [Concomitant]
     Active Substance: FLUDARABINE PHOSPHATE
     Indication: Chronic leukaemia
     Dosage: UNK
     Route: 065
  9. CARFILZOMIB [Concomitant]
     Active Substance: CARFILZOMIB
     Indication: Chronic leukaemia
     Dosage: UNK
     Route: 065
  10. CLOFARABINE [Concomitant]
     Active Substance: CLOFARABINE
     Indication: Chronic leukaemia
     Dosage: UNK
     Route: 065
  11. CYCLOPHOSPHAMIDE [Concomitant]
     Active Substance: CYCLOPHOSPHAMIDE
     Indication: Chronic leukaemia
     Dosage: UNK
     Route: 065
  12. THYMOCYTE IMMUNE GLOBULIN NOS [Concomitant]
     Active Substance: THYMOCYTE IMMUNE GLOBULIN NOS
     Indication: Chronic leukaemia
     Dosage: UNK
     Route: 065
  13. DARATUMUMAB [Concomitant]
     Active Substance: DARATUMUMAB
     Indication: Chronic leukaemia
     Dosage: UNK
     Route: 065

REACTIONS (1)
  - Drug ineffective [Unknown]
